FAERS Safety Report 24995904 (Version 5)
Quarter: 2025Q4

REPORT INFORMATION
  Report Type: Report from Study
  Country: CA (occurrence: CA)
  Receive Date: 20250221
  Receipt Date: 20251217
  Transmission Date: 20260117
  Serious: Yes (Hospitalization, Other)
  Sender: JOHNSON AND JOHNSON
  Company Number: CA-JNJFOC-20240759514

PATIENT
  Age: 46 Year
  Sex: Male

DRUGS (2)
  1. REMICADE [Suspect]
     Active Substance: INFLIXIMAB
     Indication: Crohn^s disease
     Route: 041
     Dates: start: 20050401
  2. REMICADE [Suspect]
     Active Substance: INFLIXIMAB
     Route: 041

REACTIONS (5)
  - Neuroendocrine carcinoma [Recovering/Resolving]
  - Impaired healing [Unknown]
  - Post procedural infection [Unknown]
  - Blood urine present [Recovered/Resolved]
  - Prostatomegaly [Unknown]

NARRATIVE: CASE EVENT DATE: 20241115
